FAERS Safety Report 9533718 (Version 2)
Quarter: 2013Q4

REPORT INFORMATION
  Report Type: Report from Study
  Country: US (occurrence: US)
  Receive Date: 20130918
  Receipt Date: 20131030
  Transmission Date: 20140711
  Serious: Yes (Other)
  Sender: FDA-Public Use
  Company Number: US-GILEAD-2013-0083179

PATIENT
  Age: 27 Year
  Sex: Male
  Weight: 76 kg

DRUGS (5)
  1. EMTRICITABINE/TENOFOVIR DISOPROXIL FUMARATE [Suspect]
     Indication: PROPHYLAXIS AGAINST HIV INFECTION
     Dosage: UNK
     Dates: start: 20130807, end: 20130813
  2. ASPIRIN [Concomitant]
  3. CEFTRIAXONE [Concomitant]
     Dosage: UNK
     Dates: start: 20130815
  4. AZITHROMYCINE ALMUS [Concomitant]
     Dosage: UNK
     Dates: start: 20130816
  5. PNEUMOVAX [Concomitant]
     Dosage: UNK
     Dates: start: 20130822

REACTIONS (1)
  - Seroconversion test positive [Recovered/Resolved]
